FAERS Safety Report 22071435 (Version 1)
Quarter: 2023Q1

REPORT INFORMATION
  Report Type: Spontaneous
  Country: GB (occurrence: GB)
  Receive Date: 20230307
  Receipt Date: 20230307
  Transmission Date: 20230418
  Serious: Yes (Hospitalization, Other)
  Sender: FDA-Public Use
  Company Number: GB-VERTEX PHARMACEUTICALS-2021-012705

PATIENT
  Age: 28 Year
  Sex: Male

DRUGS (19)
  1. AZITHROMYCIN [Suspect]
     Active Substance: AZITHROMYCIN
     Indication: Product used for unknown indication
     Route: 065
  2. FLUCLOXACILLIN [Suspect]
     Active Substance: FLUCLOXACILLIN
     Indication: Epididymitis
     Dosage: UNK
     Route: 065
     Dates: end: 2021
  3. ELEXACAFTOR\IVACAFTOR\TEZACAFTOR [Suspect]
     Active Substance: ELEXACAFTOR\IVACAFTOR\TEZACAFTOR
     Indication: Cystic fibrosis
     Dosage: DAILY
     Route: 048
     Dates: start: 20200511, end: 20210810
  4. ELEXACAFTOR\IVACAFTOR\TEZACAFTOR [Suspect]
     Active Substance: ELEXACAFTOR\IVACAFTOR\TEZACAFTOR
     Dosage: FULL DOSE
     Route: 048
     Dates: start: 20211103, end: 20220201
  5. ELEXACAFTOR\IVACAFTOR\TEZACAFTOR [Suspect]
     Active Substance: ELEXACAFTOR\IVACAFTOR\TEZACAFTOR
     Dosage: ALTERNATE DAY, DOSING
     Route: 048
     Dates: start: 20211026, end: 20211102
  6. ELEXACAFTOR\IVACAFTOR\TEZACAFTOR [Suspect]
     Active Substance: ELEXACAFTOR\IVACAFTOR\TEZACAFTOR
     Dosage: TWICE A WEEK
     Route: 048
  7. ELEXACAFTOR\IVACAFTOR\TEZACAFTOR [Suspect]
     Active Substance: ELEXACAFTOR\IVACAFTOR\TEZACAFTOR
     Dosage: 2 TABS THRICE A WEEK
     Route: 048
  8. KALYDECO [Suspect]
     Active Substance: IVACAFTOR
     Indication: Cystic fibrosis
     Dosage: UNK
     Route: 048
     Dates: start: 202012, end: 20210810
  9. KALYDECO [Suspect]
     Active Substance: IVACAFTOR
     Dosage: ALTERNATE DAY DOSING
     Route: 048
     Dates: start: 20211019, end: 20211102
  10. KALYDECO [Suspect]
     Active Substance: IVACAFTOR
     Dosage: FULL DOSE
     Route: 048
     Dates: start: 20211103
  11. FLUTICASONE FUROATE [Concomitant]
     Active Substance: FLUTICASONE FUROATE
  12. CREON [Concomitant]
     Active Substance: PANCRELIPASE AMYLASE\PANCRELIPASE LIPASE\PANCRELIPASE PROTEASE
  13. SODIUM CHLORIDE [Concomitant]
     Active Substance: SODIUM CHLORIDE
  14. LEVEMIR [Concomitant]
     Active Substance: INSULIN DETEMIR
  15. MINOCYCLINE [Concomitant]
     Active Substance: MINOCYCLINE HYDROCHLORIDE
  16. NOVORAPID [Concomitant]
     Active Substance: INSULIN ASPART
  17. OMEPRAZOLE [Concomitant]
     Active Substance: OMEPRAZOLE
  18. PULMOZYME [Concomitant]
     Active Substance: DORNASE ALFA
  19. THEOPHYLLINE ANHYDROUS [Concomitant]
     Active Substance: THEOPHYLLINE ANHYDROUS

REACTIONS (8)
  - Alanine aminotransferase increased [Recovering/Resolving]
  - Epididymitis [Recovered/Resolved]
  - Liver injury [Unknown]
  - Vitamin B12 increased [Not Recovered/Not Resolved]
  - Myalgia [Recovered/Resolved]
  - C-reactive protein increased [Not Recovered/Not Resolved]
  - Blood alkaline phosphatase increased [Not Recovered/Not Resolved]
  - Cholelithiasis [Unknown]

NARRATIVE: CASE EVENT DATE: 20210802
